FAERS Safety Report 25845865 (Version 1)
Quarter: 2025Q3

REPORT INFORMATION
  Report Type: Spontaneous
  Country: EU (occurrence: EU)
  Receive Date: 20250925
  Receipt Date: 20250925
  Transmission Date: 20251021
  Serious: Yes (Hospitalization)
  Sender: RANBAXY
  Company Number: EU-AFSSAPS-PC2025000463

PATIENT
  Age: 96 Year
  Sex: Female
  Weight: 48.4 kg

DRUGS (5)
  1. RISPERIDONE [Suspect]
     Active Substance: RISPERIDONE
     Indication: Antipsychotic therapy
     Dosage: 1 MILLIGRAM, DAILY, 0,5 MG 2X/DAY
     Route: 048
     Dates: start: 20250419, end: 20250421
  2. RISPERIDONE [Suspect]
     Active Substance: RISPERIDONE
     Dosage: 1.5 MILLIGRAM, DAILY, 0.5MG IN THE MORNING AND 1MG IN THE EVENING
     Route: 048
     Dates: start: 20250422, end: 20250424
  3. RISPERIDONE [Suspect]
     Active Substance: RISPERIDONE
     Dosage: 1 MILLIGRAM, DAILY, 0.5 MG 2X/DAY
     Route: 048
     Dates: start: 20250424, end: 20250429
  4. ATORVASTATIN [Suspect]
     Active Substance: ATORVASTATIN
     Indication: Dyslipidaemia
     Dosage: 40 MILLIGRAM, DAILY, 40 MG/DAY
     Route: 048
     Dates: start: 20250424, end: 20250429
  5. ZOPICLONE [Suspect]
     Active Substance: ZOPICLONE
     Indication: Product used for unknown indication
     Dosage: 0.5 MILLIGRAM, DAILY, 0,5 MG/DAY
     Route: 048
     Dates: start: 20250417, end: 20250429

REACTIONS (1)
  - Hepatitis acute [Recovering/Resolving]

NARRATIVE: CASE EVENT DATE: 20250425
